FAERS Safety Report 14186166 (Version 2)
Quarter: 2017Q4

REPORT INFORMATION
  Report Type: Report from Study
  Country: MX (occurrence: MX)
  Receive Date: 20171114
  Receipt Date: 20171118
  Transmission Date: 20180321
  Serious: No
  Sender: FDA-Public Use
  Company Number: MX-UCBSA-2017045241

PATIENT
  Sex: Male
  Weight: 7 kg

DRUGS (3)
  1. LEVETIRACETAM. [Suspect]
     Active Substance: LEVETIRACETAM
     Dosage: 0.7 ML, 2X/DAY (BID)
     Route: 048
     Dates: start: 2017, end: 2017
  2. LEVETIRACETAM. [Suspect]
     Active Substance: LEVETIRACETAM
     Indication: EPILEPSY
     Dosage: 0.5 ML, 2X/DAY (BID)
     Route: 048
     Dates: start: 20170820, end: 2017
  3. LEVETIRACETAM. [Suspect]
     Active Substance: LEVETIRACETAM
     Dosage: 1 ML, 2X/DAY (BID)
     Route: 048
     Dates: start: 2017, end: 2017

REACTIONS (1)
  - No adverse event [Unknown]
